FAERS Safety Report 16297159 (Version 1)
Quarter: 2019Q2

REPORT INFORMATION
  Report Type: Spontaneous
  Country: GB (occurrence: GB)
  Receive Date: 20190510
  Receipt Date: 20190510
  Transmission Date: 20190711
  Serious: Yes (Life-Threatening, Hospitalization, Other)
  Sender: FDA-Public Use
  Company Number: GB-MYLANLABS-2019M1043491

PATIENT
  Age: 50 Year
  Sex: Male

DRUGS (3)
  1. EFAVIRENZ + EMTRICITABINE + TENOFOVIR [Concomitant]
     Active Substance: EFAVIRENZ\EMTRICITABINE\TENOFOVIR DISOPROXIL FUMARATE
     Indication: HIV INFECTION
     Dosage: SINGLE TABLET REGIMEN
     Route: 048
  2. AZATHIOPRINE. [Suspect]
     Active Substance: AZATHIOPRINE
     Indication: COLITIS ULCERATIVE
     Route: 065
  3. MESALAZINE [Concomitant]
     Active Substance: MESALAMINE
     Indication: COLITIS ULCERATIVE
     Route: 065

REACTIONS (7)
  - Diarrhoea [Recovering/Resolving]
  - Renal impairment [Recovered/Resolved]
  - Disseminated cytomegaloviral infection [Recovering/Resolving]
  - Pneumonia cytomegaloviral [Recovering/Resolving]
  - Cytomegalovirus urinary tract infection [Recovering/Resolving]
  - Proctitis bacterial [Recovering/Resolving]
  - Haemophagocytic lymphohistiocytosis [Recovering/Resolving]
